FAERS Safety Report 7418390-4 (Version None)
Quarter: 2011Q2

REPORT INFORMATION
  Report Type: 
  Country: None (occurrence: None)
  Receive Date: 20110415
  Receipt Date: 20110406
  Transmission Date: 20111010
  Serious: Yes (Hospitalization, Other)
  Sender: FDA-Public Use
  Company Number: US-ASTRAZENECA-2011SE19968

PATIENT
  Age: 909 Month
  Sex: Female

DRUGS (3)
  1. CRESTOR [Suspect]
     Route: 048
  2. ATACAND [Suspect]
     Route: 048
  3. TIKOSYN [Concomitant]

REACTIONS (5)
  - NEOPLASM MALIGNANT [None]
  - CARDIAC DISORDER [None]
  - HOSPITALISATION [None]
  - PALPITATIONS [None]
  - CARDIAC FAILURE CONGESTIVE [None]
